FAERS Safety Report 6427417-8 (Version None)
Quarter: 2009Q4

REPORT INFORMATION
  Report Type: 
  Country: None (occurrence: None)
  Receive Date: 20091104
  Receipt Date: 20091023
  Transmission Date: 20100525
  Serious: Yes (Life-Threatening, Hospitalization, Other)
  Sender: FDA-Public Use
  Company Number: GB-PFIZER INC-2008030030

PATIENT
  Age: 70 Year
  Sex: Male

DRUGS (4)
  1. VORICONAZOLE [Suspect]
     Indication: ASPERGILLOSIS
  2. MABCAMPATH [Suspect]
     Indication: CHRONIC LYMPHOCYTIC LEUKAEMIA
     Dosage: UNK
     Route: 058
     Dates: start: 20070712, end: 20071002
  3. CHLORPHENAMINE [Concomitant]
  4. HYDROCORTISONE [Concomitant]

REACTIONS (6)
  - AGRANULOCYTOSIS [None]
  - BRONCHOPULMONARY ASPERGILLOSIS [None]
  - COUGH [None]
  - HEPATIC FUNCTION ABNORMAL [None]
  - NEUTROPENIA [None]
  - PYREXIA [None]
